FAERS Safety Report 17101488 (Version 2)
Quarter: 2019Q4

REPORT INFORMATION
  Report Type: Report from Study
  Country: None (occurrence: US)
  Receive Date: 20191202
  Receipt Date: 20191206
  Transmission Date: 20200122
  Serious: Yes (Other)
  Sender: FDA-Public Use
  Company Number: US-ABBVIE-19P-163-3175375-00

PATIENT
  Sex: Male

DRUGS (1)
  1. IMBRUVICA [Suspect]
     Active Substance: IBRUTINIB
     Indication: LYMPHOCYTIC LEUKAEMIA
     Route: 048
     Dates: start: 20190715, end: 2019

REACTIONS (5)
  - Necrotising fasciitis [Unknown]
  - Candida infection [Recovered/Resolved]
  - Liver function test increased [Unknown]
  - Mucosal inflammation [Unknown]
  - Infection [Unknown]

NARRATIVE: CASE EVENT DATE: 2019
